FAERS Safety Report 6088616-0 (Version None)
Quarter: 2009Q1

REPORT INFORMATION
  Report Type: 
  Country: None (occurrence: None)
  Receive Date: 20090224
  Receipt Date: 20090223
  Transmission Date: 20090719
  Serious: Yes (Other)
  Sender: FDA-Public Use
  Company Number: US-PFIZER INC-2009154941

PATIENT
  Sex: Female
  Weight: 77.11 kg

DRUGS (2)
  1. CELEBREX [Suspect]
     Indication: ARTHRITIS
     Route: 048
  2. SYNTHROID [Concomitant]

REACTIONS (1)
  - KNEE ARTHROPLASTY [None]
